FAERS Safety Report 15608941 (Version 1)
Quarter: 2018Q4

REPORT INFORMATION
  Report Type: Spontaneous
  Country: US (occurrence: US)
  Receive Date: 20181112
  Receipt Date: 20181112
  Transmission Date: 20190205
  Serious: No
  Sender: FDA-Public Use
  Company Number: US-SA-2018SA309795

PATIENT
  Age: 8 Year
  Sex: Male

DRUGS (5)
  1. CERAVE ITCH RELIEF [Concomitant]
  2. TRIAMCINOLONE ACETONIDE. [Concomitant]
     Active Substance: TRIAMCINOLONE ACETONIDE
  3. UREACIN [Concomitant]
  4. DUPIXENT [Suspect]
     Active Substance: DUPILUMAB
     Indication: DERMATITIS ATOPIC
     Dosage: 300 MG, QOW
     Route: 058
     Dates: start: 20181004
  5. EUCRISA [Concomitant]
     Active Substance: CRISABOROLE

REACTIONS (1)
  - Ocular hyperaemia [Unknown]
